FAERS Safety Report 5378997-5 (Version None)
Quarter: 2007Q3

REPORT INFORMATION
  Report Type: 
  Country: None (occurrence: None)
  Receive Date: 20070705
  Receipt Date: 20070626
  Transmission Date: 20080115
  Serious: Yes (Other)
  Sender: FDA-Public Use
  Company Number: US-AMGEN-US231457

PATIENT
  Sex: Female

DRUGS (2)
  1. ENBREL [Suspect]
     Indication: RHEUMATOID ARTHRITIS
     Route: 058
     Dates: start: 20000401
  2. METHOTREXATE [Concomitant]
     Route: 065
     Dates: start: 19950101

REACTIONS (4)
  - ARTHRALGIA [None]
  - JOINT SWELLING [None]
  - LYMPH NODE TUBERCULOSIS [None]
  - WEIGHT DECREASED [None]
